FAERS Safety Report 15320213 (Version 44)
Quarter: 2023Q1

REPORT INFORMATION
  Report Type: Other
  Country: DE (occurrence: DE)
  Receive Date: 20180827
  Receipt Date: 20230314
  Transmission Date: 20230417
  Serious: Yes (Other)
  Sender: FDA-Public Use
  Company Number: DE-ROCHE-2173384

PATIENT
  Age: 66 Year
  Sex: Male
  Weight: 81 kg

DRUGS (12)
  1. COMIRNATY [Suspect]
     Active Substance: TOZINAMERAN
     Indication: COVID-19 immunisation
     Route: 065
     Dates: start: 20210415
  2. COMIRNATY [Suspect]
     Active Substance: TOZINAMERAN
     Route: 065
     Dates: start: 20210520, end: 20210520
  3. OCREVUS [Suspect]
     Active Substance: OCRELIZUMAB
     Indication: Primary progressive multiple sclerosis
     Route: 042
     Dates: start: 20180705
  4. OCREVUS [Suspect]
     Active Substance: OCRELIZUMAB
     Route: 042
     Dates: start: 20190121
  5. OCREVUS [Suspect]
     Active Substance: OCRELIZUMAB
     Route: 042
     Dates: start: 20190722
  6. OCREVUS [Suspect]
     Active Substance: OCRELIZUMAB
     Route: 042
     Dates: start: 2021
  7. OCREVUS [Suspect]
     Active Substance: OCRELIZUMAB
     Dosage: 7TH MAINTENANCE DOSE, SHORTENED INFUSION DURATION
     Route: 042
     Dates: start: 20220214, end: 20220214
  8. DULOXETINE [Concomitant]
     Active Substance: DULOXETINE
  9. ACETAMINOPHEN [Concomitant]
     Active Substance: ACETAMINOPHEN
     Dosage: 500 MG, AS NEEDED
  10. BACLOFEN [Concomitant]
     Active Substance: BACLOFEN
  11. GABAPENTIN [Concomitant]
     Active Substance: GABAPENTIN
     Indication: Product used for unknown indication
  12. PANTOPRAZOLE SODIUM [Concomitant]
     Active Substance: PANTOPRAZOLE SODIUM

REACTIONS (30)
  - Musculoskeletal stiffness [Unknown]
  - Erysipelas [Recovered/Resolved]
  - Borrelia infection [Not Recovered/Not Resolved]
  - Muscular weakness [Not Recovered/Not Resolved]
  - Pneumonia [Recovered/Resolved]
  - Hypoaesthesia [Not Recovered/Not Resolved]
  - Platelet count decreased [Recovered/Resolved]
  - Arthralgia [Not Recovered/Not Resolved]
  - Pyrexia [Recovered/Resolved]
  - Increased appetite [Recovering/Resolving]
  - Fine motor skill dysfunction [Not Recovered/Not Resolved]
  - Muscle spasms [Not Recovered/Not Resolved]
  - Pain in extremity [Recovered/Resolved]
  - Asthenia [Recovered/Resolved]
  - White blood cell count decreased [Recovered/Resolved]
  - Drug eruption [Recovered/Resolved]
  - Vaccination site pain [Recovered/Resolved]
  - Muscle spasms [Not Recovered/Not Resolved]
  - Influenza [Recovered/Resolved]
  - Gait disturbance [Not Recovered/Not Resolved]
  - Weight increased [Recovering/Resolving]
  - Nasopharyngitis [Recovered/Resolved]
  - Fine motor skill dysfunction [Not Recovered/Not Resolved]
  - Arthralgia [Not Recovered/Not Resolved]
  - Muscle spasticity [Not Recovered/Not Resolved]
  - Fatigue [Recovered/Resolved]
  - Myalgia [Not Recovered/Not Resolved]
  - Urinary tract infection [Recovered/Resolved]
  - COVID-19 [Recovering/Resolving]
  - Drug ineffective [Unknown]

NARRATIVE: CASE EVENT DATE: 20180705
